FAERS Safety Report 6997215 (Version 3)
Quarter: 2012Q4

REPORT INFORMATION
  Report Type: 
  Country: US (occurrence: US)
  Receive Date: 20090518
  Receipt Date: 20121213
  Transmission Date: 20130627
  Serious: Yes (Hospitalization)
  Sender: FDA-Public Use
  Company Number: PHHO2009US04053

PATIENT
  Age: 79 Year
  Sex: Female
  Weight: 59.86 kg

DRUGS (11)
  1. AFINITOR [Suspect]
     Indication: METASTATIC MALIGNANT MELANOMA
     Dosage: 10 mg, QD
     Dates: start: 20080915, end: 20090420
  2. BEVACIZUMAB [Suspect]
     Indication: METASTATIC MALIGNANT MELANOMA
     Dosage: 15 mg/m2, QD
     Route: 042
     Dates: start: 20080915, end: 20090227
  3. COUMADIN [Concomitant]
     Indication: THROMBOSIS
  4. ARIXTRA [Concomitant]
     Dosage: UNK
  5. LIPITOR [Concomitant]
     Dosage: 10 mg/day
  6. DIOVAN [Concomitant]
     Dosage: 25 mg, QD
  7. TOPROL [Concomitant]
     Dosage: 25 mg, QD
  8. LOTREL [Concomitant]
     Dosage: UNK
  9. SINGULAIR [Concomitant]
     Dosage: 10 mg, QD
  10. LASIX [Concomitant]
  11. LORAZEPAM [Concomitant]

REACTIONS (4)
  - Coagulopathy [Recovered/Resolved with Sequelae]
  - Epistaxis [Recovered/Resolved with Sequelae]
  - Rectal haemorrhage [Recovered/Resolved with Sequelae]
  - International normalised ratio increased [Recovered/Resolved with Sequelae]
